FAERS Safety Report 25177234 (Version 1)
Quarter: 2025Q2

REPORT INFORMATION
  Report Type: Report from Study
  Country: IT (occurrence: IT)
  Receive Date: 20250409
  Receipt Date: 20250409
  Transmission Date: 20250717
  Serious: Yes (Other)
  Sender: ACCORD
  Company Number: None

PATIENT
  Age: 78 Year
  Sex: Female

DRUGS (3)
  1. CAPECITABINE [Suspect]
     Active Substance: CAPECITABINE
     Indication: Central nervous system neuroblastoma
     Dates: start: 20240101
  2. ZETIA [Concomitant]
     Active Substance: EZETIMIBE
  3. EPOETIN ALFA [Concomitant]
     Active Substance: ERYTHROPOIETIN

REACTIONS (1)
  - Cancer fatigue [Unknown]

NARRATIVE: CASE EVENT DATE: 20240712
